FAERS Safety Report 5222738-9 (Version None)
Quarter: 2007Q1

REPORT INFORMATION
  Report Type: 
  Country: None (occurrence: None)
  Receive Date: 20061208
  Receipt Date: 20051214
  Transmission Date: 20070707
  Serious: Yes (Other)
  Sender: FDA-Public Use
  Company Number: 2005169758

PATIENT
  Sex: Male
  Weight: 122.4712 kg

DRUGS (7)
  1. VIAGRA [Suspect]
     Indication: ERECTILE DYSFUNCTION
     Dates: start: 20040101, end: 20040101
  2. ZOCOR [Concomitant]
  3. ENALAPRIL MALEATE [Concomitant]
  4. ISOSORBIDE (ISOSORBIDE) [Concomitant]
  5. NIASPAN [Concomitant]
  6. PREVACID [Concomitant]
  7. ACTOS [Concomitant]

REACTIONS (2)
  - DRUG INEFFECTIVE [None]
  - MYOCARDIAL INFARCTION [None]
